FAERS Safety Report 12836427 (Version 1)
Quarter: 2016Q4

REPORT INFORMATION
  Report Type: Spontaneous
  Country: CN (occurrence: CN)
  Receive Date: 20161011
  Receipt Date: 20161011
  Transmission Date: 20170207
  Serious: Yes (Other)
  Sender: FDA-Public Use
  Company Number: CN-PFIZER INC-2016474536

PATIENT
  Age: 40 Year
  Sex: Male

DRUGS (1)
  1. SOLU-MEDROL [Suspect]
     Active Substance: METHYLPREDNISOLONE SODIUM SUCCINATE
     Indication: PROTEINURIA
     Dosage: 60 MG, 1X/DAY
     Route: 041
     Dates: start: 20160512, end: 20160512

REACTIONS (2)
  - Transaminases increased [Recovering/Resolving]
  - Liver disorder [Recovering/Resolving]

NARRATIVE: CASE EVENT DATE: 20160526
